FAERS Safety Report 14246337 (Version 1)
Quarter: 2017Q4

REPORT INFORMATION
  Report Type: Spontaneous
  Country: US (occurrence: US)
  Receive Date: 20171204
  Receipt Date: 20171204
  Transmission Date: 20180321
  Serious: No
  Sender: FDA-Public Use
  Company Number: US-TEVA-780218USA

PATIENT
  Sex: Female

DRUGS (2)
  1. LAMOTRIGINE. [Concomitant]
     Active Substance: LAMOTRIGINE
     Indication: ANXIETY
  2. TRIHEXYPHENIDYL HYDROCHLORIDE TABLETS, 2 MG [Suspect]
     Active Substance: TRIHEXYPHENIDYL HYDROCHLORIDE
     Indication: TREMOR
     Dates: start: 201705

REACTIONS (9)
  - Tongue biting [Unknown]
  - Wrong technique in product usage process [None]
  - Oral discomfort [Unknown]
  - Swelling face [Unknown]
  - Hyperhidrosis [Unknown]
  - Nausea [Unknown]
  - Diarrhoea [Unknown]
  - Chronic cheek biting [Unknown]
  - Abdominal discomfort [Unknown]
